FAERS Safety Report 15397340 (Version 2)
Quarter: 2018Q3

REPORT INFORMATION
  Report Type: Spontaneous
  Country: US (occurrence: US)
  Receive Date: 20180918
  Receipt Date: 20180926
  Transmission Date: 20181010
  Serious: Yes (Other)
  Sender: FDA-Public Use
  Company Number: US-TEVA-2018-US-954509

PATIENT
  Age: 30 Year
  Sex: Female

DRUGS (5)
  1. HYDROXYCHLOROQUINE [Concomitant]
     Active Substance: HYDROXYCHLOROQUINE
     Route: 065
  2. SULFASALAZINE. [Concomitant]
     Active Substance: SULFASALAZINE
     Route: 065
  3. CELECOXIB. [Suspect]
     Active Substance: CELECOXIB
     Indication: STILL^S DISEASE
     Route: 065
  4. METHYLPREDNISOLONE. [Concomitant]
     Active Substance: METHYLPREDNISOLONE
     Indication: STILL^S DISEASE
     Dosage: STARTED AT 22.3WEEKS OF GESTATION
     Route: 065
  5. ANAKINRA [Suspect]
     Active Substance: ANAKINRA
     Indication: STILL^S DISEASE
     Dosage: FROM PRECONCEPTION TILL 20.4 WEEKS OF GESTATION
     Route: 065

REACTIONS (3)
  - Maternal exposure during pregnancy [Unknown]
  - Live birth [Unknown]
  - Oligohydramnios [Unknown]
